FAERS Safety Report 7639165-7 (Version None)
Quarter: 2011Q3

REPORT INFORMATION
  Report Type: 
  Country: None (occurrence: None)
  Receive Date: 20110721
  Receipt Date: 20110707
  Transmission Date: 20111222
  Serious: Yes (Hospitalization)
  Sender: FDA-Public Use
  Company Number: 1000022190

PATIENT
  Age: 73 Year
  Sex: Female

DRUGS (13)
  1. IMOVANE (ZOPICLONE) (TABLETS) [Suspect]
     Indication: INSOMNIA
     Dosage: (7.5 MG), ORAL
     Route: 048
  2. IMOVANE (ZOPICLONE) (TABLETS) [Suspect]
     Indication: INSOMNIA
     Dosage: REDUCED DOSE, ORAL
     Route: 048
  3. LOVENOX (ENOXAPARIN SODIUM) (ENOXAPARIN SODIUM) [Concomitant]
  4. CRESTOR (ROSUVASTATIN0 (ROSUVASTATIN) [Concomitant]
  5. LEVOTHYROXINE SODIUM [Concomitant]
  6. XANAX [Concomitant]
  7. CERIS (TROSPRIUM CHLORIDE) [Suspect]
     Indication: MICTURITION DISORDER
     Dosage: 1 DOSAGE FORM (1 DOSAGE FORMS, 1 IN 1 D)
     Dates: end: 20110510
  8. ATHYMIL (MIANSERIN HYDROCHLORIDE) (MIANSERIN HYDROCHLORIDE) [Concomitant]
  9. ESCITALOPRAM OXALATE [Suspect]
     Dosage: 10 MG (10 MG, 1 IN 1 D), ORAL
     Route: 048
  10. ESCITALOPRAM OXALATE [Suspect]
     Dosage: REDUCED DOSE, ORAL
  11. DITROPAN [Suspect]
     Indication: MICTURITION DISORDER
     Dosage: 1 DOSAGE FORM (1 DOSAGE FORMS, 1 IN 1 D), ORAL
     Route: 048
     Dates: end: 20110510
  12. FOSAVANCE (ALENDRONATE SODIUM, COLECALCIFEROL) (ALENDRONATE SODIUM, CO [Concomitant]
  13. AMLODIPINE BESYLATE [Concomitant]

REACTIONS (3)
  - COGNITIVE DISORDER [None]
  - DRY MOUTH [None]
  - FALL [None]
